FAERS Safety Report 17457330 (Version 1)
Quarter: 2020Q1

REPORT INFORMATION
  Report Type: Report from Study
  Country: None (occurrence: AT)
  Receive Date: 20200225
  Receipt Date: 20200225
  Transmission Date: 20200409
  Serious: Yes (Death)
  Sender: FDA-Public Use
  Company Number: AT-ABBVIE-20K-009-3291925-00

PATIENT
  Sex: Male

DRUGS (1)
  1. DUODOPA [Suspect]
     Active Substance: CARBIDOPA\LEVODOPA
     Indication: PARKINSON^S DISEASE
     Dosage: 16H??MD: 7ML, CR DAYTIME: 5.3ML/H, ED: 2.8ML
     Route: 050
     Dates: start: 20130218

REACTIONS (1)
  - General physical health deterioration [Fatal]
